FAERS Safety Report 6390121-9 (Version None)
Quarter: 2009Q4

REPORT INFORMATION
  Report Type: 
  Country: None (occurrence: None)
  Receive Date: 20091006
  Receipt Date: 20090925
  Transmission Date: 20100525
  Serious: Yes (Hospitalization)
  Sender: FDA-Public Use
  Company Number: US-NOVOPROD-292182

PATIENT
  Age: 65 Year
  Sex: Male

DRUGS (1)
  1. PRANDIN [Suspect]
     Indication: DIABETES MELLITUS
     Dosage: UNKNOWN

REACTIONS (3)
  - CEREBROVASCULAR ACCIDENT [None]
  - CORONARY ARTERY DISEASE [None]
  - HEART TRANSPLANT REJECTION [None]
